FAERS Safety Report 8717757 (Version 3)
Quarter: 2012Q4

REPORT INFORMATION
  Report Type: 
  Country: CA (occurrence: CA)
  Receive Date: 20120810
  Receipt Date: 20121002
  Transmission Date: 20130627
  Serious: Yes (Life-Threatening)
  Sender: FDA-Public Use
  Company Number: CA-GLAXOSMITHKLINE-A0987784A

PATIENT
  Sex: Male

DRUGS (1)
  1. ADVAIR [Suspect]
     Indication: PRODUCT USED FOR UNKNOWN INDICATION
     Dosage: 2PUFF Twice per day
     Route: 055

REACTIONS (3)
  - Dyspnoea [Recovered/Resolved]
  - Underdose [Unknown]
  - Product quality issue [Unknown]
